FAERS Safety Report 17649741 (Version 1)
Quarter: 2020Q2

REPORT INFORMATION
  Report Type: Other
  Country: NO (occurrence: NO)
  Receive Date: 20200408
  Receipt Date: 20200408
  Transmission Date: 20200713
  Serious: Yes (Hospitalization)
  Sender: FDA-Public Use
  Company Number: NO-GE HEALTHCARE LIFE SCIENCES-2020CSU001309

PATIENT

DRUGS (2)
  1. CLARISCAN [Suspect]
     Active Substance: GADOTERATE MEGLUMINE
     Indication: PITUITARY SCAN
     Dosage: 10 ML, SINGLE
     Route: 042
     Dates: start: 20200129, end: 20200129
  2. CLARISCAN [Suspect]
     Active Substance: GADOTERATE MEGLUMINE
     Indication: PRODUCT USED FOR UNKNOWN INDICATION

REACTIONS (3)
  - Hyperhidrosis [Unknown]
  - Balance disorder [Unknown]
  - Malaise [Unknown]

NARRATIVE: CASE EVENT DATE: 20200129
